FAERS Safety Report 8472917-2 (Version None)
Quarter: 2012Q2

REPORT INFORMATION
  Report Type: 
  Country: None (occurrence: None)
  Receive Date: 20120627
  Receipt Date: 20120613
  Transmission Date: 20120825
  Serious: No
  Sender: FDA-Public Use
  Company Number: US-ASTRAZENECA-2012SE39557

PATIENT
  Age: 21 Year
  Sex: Male
  Weight: 63.5 kg

DRUGS (6)
  1. LORATADINE [Concomitant]
     Indication: SEASONAL ALLERGY
  2. SEROQUEL [Suspect]
     Indication: SCHIZOPHRENIA
     Dosage: CUTTING HALF
     Route: 048
     Dates: start: 20120502
  3. ALBUTEROL RESCUE INHALER [Concomitant]
     Indication: PROPHYLAXIS
     Dosage: AS NEEDED
  4. ASMANEX TWISTHALER [Concomitant]
     Indication: ASTHMA
     Dosage: 220 MCG 2 PUFF DAILY
  5. NASONEX [Concomitant]
     Indication: SEASONAL ALLERGY
     Dosage: 1 PUFF PR NOSTRIL DAILY
  6. ALLERGY INJECTION SHOTS [Concomitant]
     Indication: SEASONAL ALLERGY
     Dosage: 1 SHOT EVERY 4 WEEKS

REACTIONS (4)
  - ACTIVITIES OF DAILY LIVING IMPAIRED [None]
  - SOMNOLENCE [None]
  - DIZZINESS [None]
  - INTENTIONAL DRUG MISUSE [None]
